FAERS Safety Report 23090730 (Version 3)
Quarter: 2023Q4

REPORT INFORMATION
  Report Type: Report from Study
  Country: US (occurrence: US)
  Receive Date: 20231020
  Receipt Date: 20231127
  Transmission Date: 20240110
  Serious: No
  Sender: FDA-Public Use
  Company Number: US-BIOVITRUM-2023-US-010030

PATIENT
  Age: 49 Year
  Sex: Female

DRUGS (4)
  1. KINERET [Suspect]
     Active Substance: ANAKINRA
     Indication: Skin disorder
     Dosage: 100 MG DAILY
     Route: 058
     Dates: start: 20230418
  2. KINERET [Suspect]
     Active Substance: ANAKINRA
     Dosage: 100 MG, DAILY
     Route: 058
     Dates: start: 20230421
  3. COLCHICINE [Suspect]
     Active Substance: COLCHICINE
     Indication: Product used for unknown indication
     Dosage: 2 TABLETS DAILY
     Route: 048
  4. COLCHICINE [Suspect]
     Active Substance: COLCHICINE
     Dosage: 1 TABLET DAILY
     Route: 048

REACTIONS (19)
  - Intentional product misuse [Not Recovered/Not Resolved]
  - Oral pain [Unknown]
  - Oral herpes [Unknown]
  - Injection site haemorrhage [Unknown]
  - Injection site bruising [Unknown]
  - Affective disorder [Unknown]
  - Fatigue [Unknown]
  - Skin injury [Unknown]
  - Injection site discolouration [Unknown]
  - Frostbite [Unknown]
  - Skin disorder [Unknown]
  - Condition aggravated [Unknown]
  - Hypersensitivity [Unknown]
  - Nasopharyngitis [Unknown]
  - Liver disorder [Unknown]
  - Menopause [Unknown]
  - Intentional dose omission [Unknown]
  - Rash [Unknown]
  - Pain [Recovered/Resolved]

NARRATIVE: CASE EVENT DATE: 20230421
